FAERS Safety Report 5776172-3 (Version None)
Quarter: 2008Q2

REPORT INFORMATION
  Report Type: 
  Country: None (occurrence: None)
  Receive Date: 20080613
  Receipt Date: 20080530
  Transmission Date: 20081010
  Serious: Yes (Other)
  Sender: FDA-Public Use
  Company Number: 2008001264

PATIENT
  Age: 65 Year
  Sex: Female

DRUGS (3)
  1. TARCEVA [Suspect]
     Indication: PANCREATIC CARCINOMA METASTATIC
     Dosage: (150 MG, QD) , ORAL
     Route: 048
     Dates: start: 20080520
  2. MS CONTIN [Suspect]
     Indication: ABDOMINAL PAIN UPPER
     Dosage: (30 MG, BID) , ORAL
     Route: 048
     Dates: start: 20080201
  3. XELODA [Concomitant]

REACTIONS (2)
  - CYANOSIS [None]
  - RESPIRATORY DEPRESSION [None]
